FAERS Safety Report 5479879-0 (Version None)
Quarter: 2007Q4

REPORT INFORMATION
  Report Type: 
  Country: None (occurrence: None)
  Receive Date: 20071008
  Receipt Date: 20071001
  Transmission Date: 20080405
  Serious: Yes (Other)
  Sender: FDA-Public Use
  Company Number: GB-ROXANE LABORATORIES, INC-2007-BP-22238RO

PATIENT
  Age: 25 Year
  Sex: Female

DRUGS (7)
  1. CYCLOPHOSPHAMIDE [Suspect]
     Indication: RHEUMATOID ARTHRITIS
     Dates: start: 20000101
  2. METHOTREXATE [Suspect]
     Indication: RHEUMATOID ARTHRITIS
  3. SULFASALAZINE [Suspect]
     Indication: RHEUMATOID ARTHRITIS
  4. CYCLOSPORINE [Suspect]
     Indication: RHEUMATOID ARTHRITIS
  5. RITUXIMAB [Suspect]
     Indication: RHEUMATOID ARTHRITIS
  6. METHYLPREDNISOLONE [Suspect]
     Indication: RHEUMATOID ARTHRITIS
     Route: 042
  7. PREDNISOLONE [Suspect]
     Indication: RHEUMATOID ARTHRITIS
     Route: 048

REACTIONS (6)
  - B-LYMPHOCYTE COUNT DECREASED [None]
  - DRUG INEFFECTIVE [None]
  - ONYCHOLYSIS [None]
  - PSORIASIS [None]
  - TENDON RUPTURE [None]
  - UVEITIS [None]
